FAERS Safety Report 10089989 (Version 1)
Quarter: 2014Q2

REPORT INFORMATION
  Report Type: Spontaneous
  Country: CA (occurrence: CA)
  Receive Date: 20140421
  Receipt Date: 20140421
  Transmission Date: 20141212
  Serious: Yes (Other)
  Sender: FDA-Public Use
  Company Number: CA-TEVA-476685USA

PATIENT
  Age: 50 Year
  Sex: Male

DRUGS (1)
  1. TEVA-PANTOPRAZOLE [Suspect]
     Indication: GASTROOESOPHAGEAL REFLUX DISEASE
     Dosage: 40 MILLIGRAM DAILY; 40MG BY MOUTH DAILY SINCE 2006
     Route: 048
     Dates: start: 2006

REACTIONS (2)
  - Coeliac disease [Unknown]
  - Pruritus [Unknown]
